FAERS Safety Report 18257714 (Version 2)
Quarter: 2020Q4

REPORT INFORMATION
  Report Type: Spontaneous
  Country: BE (occurrence: BE)
  Receive Date: 20200911
  Receipt Date: 20201203
  Transmission Date: 20210113
  Serious: Yes (Hospitalization)
  Sender: FDA-Public Use
  Company Number: BE-PFIZER INC-2020349104

PATIENT
  Age: 76 Year
  Sex: Female

DRUGS (14)
  1. CARBOPLATIN. [Suspect]
     Active Substance: CARBOPLATIN
     Indication: NON-SMALL CELL LUNG CANCER
     Dosage: 731 MG (MOST RECENT DOSE ON 14AUG2020)
     Route: 042
     Dates: start: 20200723
  2. MOVICOLON [Concomitant]
     Active Substance: POLYETHYLENE GLYCOL 3350\POTASSIUM CHLORIDE\SODIUM BICARBONATE\SODIUM CHLORIDE
     Dosage: 12.3 MG (ONGOING, 2X)
  3. OMEPRAZOL [OMEPRAZOLE] [Concomitant]
     Active Substance: OMEPRAZOLE
     Dosage: 40 MG (ONGOING)
     Dates: start: 20171101
  4. PACLITAXEL. [Suspect]
     Active Substance: PACLITAXEL
     Indication: NON-SMALL CELL LUNG CANCER
     Dosage: 339 MG (MOST RECENT DOSE ON 14AUG2020)
     Route: 042
     Dates: start: 20200723
  5. FOLIUMZUUR [Concomitant]
     Active Substance: FOLIC ACID
     Dosage: 0.5 MG, 1X/DAY (ONGOING)
     Dates: start: 20200601
  6. CALCI-CHEW [Concomitant]
     Dosage: 500 MG/400 IU, ONGOING, 1X2
     Dates: start: 20200812
  7. SODIUM BICARBONATE. [Concomitant]
     Active Substance: SODIUM BICARBONATE
     Dosage: 12.3 MG
  8. ATORVASTATIN [Concomitant]
     Active Substance: ATORVASTATIN
     Dosage: 40 MG (ONGOING)
  9. SODIUM CHLORIDE. [Concomitant]
     Active Substance: SODIUM CHLORIDE
     Dosage: 12.3 MG
  10. POTASSIUM CHLORIDE. [Concomitant]
     Active Substance: POTASSIUM CHLORIDE
     Dosage: 12.3 MG
  11. QUETIAPINE. [Concomitant]
     Active Substance: QUETIAPINE
     Dosage: 12.5 MG (ONGOING)
     Dates: start: 20180322
  12. MACROGOL [Concomitant]
     Active Substance: POLYETHYLENE GLYCOLS
     Dosage: 12.3 MG
  13. BEVACIZUMAB. [Suspect]
     Active Substance: BEVACIZUMAB
     Indication: NON-SMALL CELL LUNG CANCER
     Dosage: 936 MG (MOST RECENT DOSE ON 14AUG2020)
     Route: 042
     Dates: start: 20200723
  14. HYDROCHLOROTHIAZIDE. [Concomitant]
     Active Substance: HYDROCHLOROTHIAZIDE
     Dosage: 12.3 MG (ONGOING)
     Dates: start: 20170101

REACTIONS (5)
  - Alanine aminotransferase increased [Unknown]
  - Haemoglobin decreased [Unknown]
  - Aspartate aminotransferase decreased [Unknown]
  - C-reactive protein increased [Unknown]
  - Haemoptysis [Recovered/Resolved]

NARRATIVE: CASE EVENT DATE: 20200818
